FAERS Safety Report 9849928 (Version 1)
Quarter: 2014Q1

REPORT INFORMATION
  Report Type: Report from Study
  Country: US (occurrence: US)
  Receive Date: 20140128
  Receipt Date: 20140128
  Transmission Date: 20141002
  Serious: Yes (Hospitalization, Other)
  Sender: FDA-Public Use
  Company Number: US-CELGENEUS-163-21880-14012627

PATIENT
  Age: 68 Year
  Sex: Female
  Weight: 56.5 kg

DRUGS (4)
  1. REVLIMID [Suspect]
     Indication: WALDENSTROM^S MACROGLOBULINAEMIA
     Dosage: 11.25 MILLIGRAM
     Route: 048
     Dates: start: 20131004
  2. REVLIMID [Suspect]
     Dosage: 11.25 MILLIGRAM
     Route: 048
     Dates: start: 20131223, end: 20140107
  3. TEMSIROLIMUS [Suspect]
     Indication: WALDENSTROM^S MACROGLOBULINAEMIA
     Dosage: 3.5714 MILLIGRAM
     Route: 041
     Dates: start: 20131004
  4. TEMSIROLIMUS [Suspect]
     Dosage: 3.5714 MILLIGRAM
     Route: 041
     Dates: start: 20131223, end: 20131230

REACTIONS (13)
  - Acute respiratory distress syndrome [Not Recovered/Not Resolved]
  - Hypoalbuminaemia [Not Recovered/Not Resolved]
  - Pleural effusion [Not Recovered/Not Resolved]
  - Hypoxia [Not Recovered/Not Resolved]
  - Hypotension [Not Recovered/Not Resolved]
  - Cough [Not Recovered/Not Resolved]
  - Muscular weakness [Not Recovered/Not Resolved]
  - Hypokalaemia [Not Recovered/Not Resolved]
  - White blood cell count decreased [Not Recovered/Not Resolved]
  - Lung infection [Not Recovered/Not Resolved]
  - Pyrexia [Not Recovered/Not Resolved]
  - Anaemia [Not Recovered/Not Resolved]
  - Renal failure acute [Not Recovered/Not Resolved]
